FAERS Safety Report 10873488 (Version 2)
Quarter: 2015Q2

REPORT INFORMATION
  Report Type: Report from Study
  Country: ES (occurrence: ES)
  Receive Date: 20150227
  Receipt Date: 20150612
  Transmission Date: 20150821
  Serious: Yes (Death, Other)
  Sender: FDA-Public Use
  Company Number: ES-CELGENE-144-21880-10070658

PATIENT

DRUGS (4)
  1. DEXAMETHASONE. [Suspect]
     Active Substance: DEXAMETHASONE
     Indication: PLASMA CELL MYELOMA
     Route: 065
  2. REVLIMID [Suspect]
     Active Substance: LENALIDOMIDE
     Dosage: 20 MILLIGRAM
     Route: 048
  3. REVLIMID [Suspect]
     Active Substance: LENALIDOMIDE
     Indication: PLASMA CELL MYELOMA
     Route: 048
  4. REVLIMID [Suspect]
     Active Substance: LENALIDOMIDE
     Route: 048

REACTIONS (19)
  - Second primary malignancy [Unknown]
  - Plasma cell myeloma [Fatal]
  - Gastrointestinal haemorrhage [Unknown]
  - Asthenia [Unknown]
  - Constipation [Unknown]
  - Deep vein thrombosis [Unknown]
  - Rash [Unknown]
  - Thrombocytopenia [Unknown]
  - Neutropenia [Unknown]
  - Drug intolerance [Unknown]
  - Anaemia [Unknown]
  - Diarrhoea [Unknown]
  - Aspiration bronchial [Fatal]
  - Toxicity to various agents [Fatal]
  - Glaucoma [Unknown]
  - Infection [Unknown]
  - Sudden death [Fatal]
  - Pneumonia [Fatal]
  - Delirium [Unknown]
